FAERS Safety Report 6671024-9 (Version None)
Quarter: 2010Q2

REPORT INFORMATION
  Report Type: 
  Country: None (occurrence: None)
  Receive Date: 20100407
  Receipt Date: 20100401
  Transmission Date: 20101027
  Serious: Yes (Life-Threatening, Hospitalization)
  Sender: FDA-Public Use
  Company Number: PHHY2010US20521

PATIENT
  Sex: Female

DRUGS (11)
  1. SANDOSTATIN [Suspect]
  2. BENTYL [Concomitant]
     Dosage: 10 MG, QID
  3. ADVAIR DISKUS 100/50 [Concomitant]
     Dosage: TWICE DAILY
  4. COMCIZENT INHALER [Concomitant]
  5. XANAX [Concomitant]
  6. ANALGESICS [Concomitant]
  7. DICODIN [Concomitant]
     Dosage: 750 MG
  8. MAGNESIUM [Concomitant]
     Dosage: 4 TIMES DAILY
  9. VITAMIN B-12 [Concomitant]
     Dosage: ONCE A MONTH
  10. LOMOSIL [Concomitant]
     Dosage: 4 TIMES A DAY
  11. PROLASAC [Concomitant]
     Dosage: ONCE DAILY

REACTIONS (5)
  - GASTRIC HAEMORRHAGE [None]
  - GASTROINTESTINAL SURGERY [None]
  - ILEOSTOMY [None]
  - VOLUME BLOOD DECREASED [None]
  - WEIGHT DECREASED [None]
